FAERS Safety Report 8472357-6 (Version None)
Quarter: 2012Q2

REPORT INFORMATION
  Report Type: 
  Country: None (occurrence: None)
  Receive Date: 20120627
  Receipt Date: 20110706
  Transmission Date: 20120825
  Serious: No
  Sender: FDA-Public Use
  Company Number: US-AMGEN-USASP2011034753

PATIENT
  Age: 77 Year
  Sex: Male
  Weight: 81.633 kg

DRUGS (7)
  1. LIPITOR [Concomitant]
     Indication: CARDIAC DISORDER
     Dosage: 40 MG, QD
     Route: 048
     Dates: start: 20010101
  2. ATENOLOL [Concomitant]
     Indication: CARDIAC DISORDER
     Dosage: 50 MG, QD
     Route: 048
     Dates: start: 20040101
  3. TRICOR [Concomitant]
     Indication: BLOOD TRIGLYCERIDES
     Dosage: 135 MG, QD
     Route: 048
     Dates: start: 20040101
  4. NOVOLIN 70/30 [Concomitant]
     Indication: DIABETES MELLITUS
     Dosage: UNK
     Route: 058
     Dates: start: 20080101
  5. ASPIRIN [Concomitant]
     Indication: CARDIAC DISORDER
     Dosage: 325 MG, QD
     Route: 048
  6. PROCRIT [Suspect]
     Indication: RENAL FAILURE CHRONIC
     Dosage: 10000 UNIT, QWK
     Route: 058
     Dates: start: 20110401
  7. SODIUM BICARBONATE [Concomitant]
     Dosage: 625 MG, 3 TIMES/WK
     Route: 048

REACTIONS (2)
  - HAEMOGLOBIN DECREASED [None]
  - PLATELET COUNT INCREASED [None]
